FAERS Safety Report 12912265 (Version 1)
Quarter: 2016Q4

REPORT INFORMATION
  Report Type: Spontaneous
  Country: JP (occurrence: JP)
  Receive Date: 20161104
  Receipt Date: 20161104
  Transmission Date: 20170207
  Serious: Yes (Life-Threatening)
  Sender: FDA-Public Use
  Company Number: JP-ASTRAZENECA-2016SF14783

PATIENT
  Age: 26 Year
  Sex: Female

DRUGS (7)
  1. ANTIEPILEPTIC DRUG [Concomitant]
     Dosage: 25MG X 42 TABLETS
  2. ANTIANXIETY DRUGS [Concomitant]
     Dosage: 3MG X 6 TABLETS
  3. DRUG FOR CENTRAL NERVOUS SYSTEM [Concomitant]
     Dosage: 20MG X 6 TABLETS
  4. ANTIDEPRESSANT DRUGS [Concomitant]
     Dosage: 1MG X 28 TABLETS
  5. HYPNOTIC SEDATIVE DRUGS [Concomitant]
  6. SEROQUEL [Suspect]
     Active Substance: QUETIAPINE FUMARATE
     Dosage: 250.0MG UNKNOWN
     Route: 048
  7. PSYCHO NEUROSIS DRUGS [Concomitant]
     Dosage: 8MG X 14 TABLETS

REACTIONS (3)
  - Intentional overdose [Unknown]
  - Suicide attempt [Unknown]
  - Coma [Unknown]
